FAERS Safety Report 11325689 (Version 1)
Quarter: 2015Q3

REPORT INFORMATION
  Report Type: Spontaneous
  Country: US (occurrence: US)
  Receive Date: 20150731
  Receipt Date: 20150731
  Transmission Date: 20151125
  Serious: Yes (Other)
  Sender: FDA-Public Use
  Company Number: US-PAR PHARMACEUTICAL, INC-2015SCPR014162

PATIENT

DRUGS (4)
  1. OXANDROLONE. [Suspect]
     Active Substance: OXANDROLONE
     Indication: ANAEMIA
     Dosage: 1 DF, OD
     Route: 048
     Dates: start: 201505, end: 2015
  2. ASPIRIN                            /00002701/ [Concomitant]
     Active Substance: ASPIRIN
     Indication: PRODUCT USED FOR UNKNOWN INDICATION
     Dosage: 1 DF, OD
     Route: 065
  3. OXANDROLONE. [Suspect]
     Active Substance: OXANDROLONE
     Dosage: 1 DF, BID
     Route: 048
     Dates: start: 2015
  4. ANDROGEL [Concomitant]
     Active Substance: TESTOSTERONE
     Indication: BLOOD TESTOSTERONE ABNORMAL
     Dosage: 4 PUMPS, / DAY
     Route: 065

REACTIONS (3)
  - Haemoglobin decreased [Not Recovered/Not Resolved]
  - Drug ineffective for unapproved indication [Unknown]
  - Condition aggravated [Not Recovered/Not Resolved]

NARRATIVE: CASE EVENT DATE: 2015
